FAERS Safety Report 16759839 (Version 2)
Quarter: 2023Q2

REPORT INFORMATION
  Report Type: Report from Study
  Country: JP (occurrence: JP)
  Receive Date: 20190830
  Receipt Date: 20230628
  Transmission Date: 20230721
  Serious: Yes (Other)
  Sender: FDA-Public Use
  Company Number: JP-PFIZER INC-2019367910

PATIENT
  Age: 7 Decade
  Sex: Male

DRUGS (1)
  1. VYNDAQEL [Suspect]
     Active Substance: TAFAMIDIS MEGLUMINE
     Indication: Cardiac amyloidosis
     Dosage: 80 MG, DAILY
     Dates: start: 20190806

REACTIONS (2)
  - Atrial tachycardia [Unknown]
  - Vomiting [Unknown]

NARRATIVE: CASE EVENT DATE: 20190801
